FAERS Safety Report 6491549-9 (Version None)
Quarter: 2009Q4

REPORT INFORMATION
  Report Type: 
  Country: None (occurrence: None)
  Receive Date: 20091211
  Receipt Date: 20091126
  Transmission Date: 20100525
  Serious: Yes (Other)
  Sender: FDA-Public Use
  Company Number: ES-SANOFI-AVENTIS-2009SA006082

PATIENT
  Age: 67 Year
  Sex: Male

DRUGS (3)
  1. LEUPRORELIN ACETATE [Suspect]
     Indication: PROSTATE CANCER
     Route: 058
     Dates: start: 20090701, end: 20091101
  2. BICALUTAMIDE [Concomitant]
     Route: 065
     Dates: start: 20090701
  3. CASODEX [Concomitant]
     Route: 065

REACTIONS (1)
  - PROSTATIC SPECIFIC ANTIGEN INCREASED [None]
